FAERS Safety Report 17769814 (Version 9)
Quarter: 2024Q3

REPORT INFORMATION
  Report Type: Spontaneous
  Country: US (occurrence: US)
  Receive Date: 20200512
  Receipt Date: 20240920
  Transmission Date: 20241017
  Serious: Yes (Hospitalization, Other)
  Sender: PFIZER
  Company Number: US-PFIZER INC-2020189154

PATIENT
  Age: 87 Year
  Sex: Female

DRUGS (11)
  1. IBRANCE [Suspect]
     Active Substance: PALBOCICLIB
     Indication: Breast cancer female
     Dosage: 100 MG
     Route: 048
     Dates: start: 20200101
  2. IBRANCE [Suspect]
     Active Substance: PALBOCICLIB
     Dosage: 100 MG, (TAKE 1 TABLET BY MOUTH EVERY 21 DAYS)
     Route: 048
  3. IBRANCE [Suspect]
     Active Substance: PALBOCICLIB
     Dosage: 100 MG, DAILY
     Route: 048
     Dates: end: 20210401
  4. IBRANCE [Suspect]
     Active Substance: PALBOCICLIB
     Dosage: 100 MG
     Dates: start: 20201022
  5. IBRANCE [Suspect]
     Active Substance: PALBOCICLIB
     Dosage: 75 MG, DAILY
     Route: 048
     Dates: start: 20230508
  6. IBRANCE [Suspect]
     Active Substance: PALBOCICLIB
     Dosage: 100 MG DAILY 3 WEEKS ON AND 1 WEEK OFF
     Route: 048
  7. IBRANCE [Suspect]
     Active Substance: PALBOCICLIB
     Dosage: 75 MG DAILY FOR 21 DAYS OFF ONE WEEK, DEPENDS ON LABS
     Route: 048
  8. EXEMESTANE [Concomitant]
     Active Substance: EXEMESTANE
     Dosage: 25 MG, DAILY
     Route: 048
     Dates: start: 201710
  9. LETROZOLE [Concomitant]
     Active Substance: LETROZOLE
     Dosage: 2.5 MG, DAILY
     Route: 048
     Dates: start: 202112
  10. FASLODEX [Concomitant]
     Active Substance: FULVESTRANT
     Dosage: UNK
  11. CASODEX [Concomitant]
     Active Substance: BICALUTAMIDE
     Dosage: UNK

REACTIONS (45)
  - Neutropenia [Unknown]
  - Leukopenia [Unknown]
  - Cytopenia [Unknown]
  - Osteonecrosis of jaw [Unknown]
  - Haematochezia [Unknown]
  - Confusional state [Unknown]
  - Eye haemorrhage [Unknown]
  - Renal failure [Unknown]
  - Stomatitis [Unknown]
  - Pruritus [Unknown]
  - Memory impairment [Unknown]
  - Nausea [Unknown]
  - Headache [Unknown]
  - Epistaxis [Unknown]
  - Oedema peripheral [Unknown]
  - Neutrophil count decreased [Unknown]
  - Pyrexia [Unknown]
  - Nasal congestion [Unknown]
  - Infection [Unknown]
  - Poor quality sleep [Unknown]
  - Arthralgia [Unknown]
  - Oral disorder [Unknown]
  - Blood pressure increased [Unknown]
  - Lymphoedema [Unknown]
  - Skin lesion [Unknown]
  - Gait inability [Unknown]
  - Chest pain [Unknown]
  - Abdominal pain upper [Unknown]
  - Cognitive disorder [Unknown]
  - Sensory loss [Unknown]
  - Normocytic anaemia [Unknown]
  - Breast pain [Unknown]
  - Tremor [Unknown]
  - Anaemia [Unknown]
  - Bone pain [Unknown]
  - Vomiting [Unknown]
  - Muscle spasms [Unknown]
  - Fatigue [Unknown]
  - Cough [Unknown]
  - Back pain [Unknown]
  - Gait disturbance [Unknown]
  - Erythema [Unknown]
  - Asthenia [Unknown]
  - Agitation [Unknown]
  - Product prescribing error [Unknown]

NARRATIVE: CASE EVENT DATE: 20200101
